FAERS Safety Report 8392216-7 (Version None)
Quarter: 2012Q2

REPORT INFORMATION
  Report Type: 
  Country: None (occurrence: None)
  Receive Date: 20120529
  Receipt Date: 20120522
  Transmission Date: 20120825
  Serious: Yes (Hospitalization)
  Sender: FDA-Public Use
  Company Number: FR-PFIZER INC-2002106502FR

PATIENT
  Age: 64 Year
  Sex: Female

DRUGS (4)
  1. CYCLOPHOSPHAMIDE [Suspect]
     Indication: BREAST CANCER FEMALE
     Dosage: 6 CYCLES
     Route: 042
     Dates: start: 19880128, end: 19880808
  2. NOLVADEX [Suspect]
     Indication: BREAST CANCER FEMALE
     Dosage: UNK
     Route: 048
     Dates: start: 19890315
  3. EPIRUBICIN HYDROCHLORIDE [Suspect]
     Indication: BREAST CANCER FEMALE
     Dosage: 6 CYCLES
     Route: 042
     Dates: start: 19880128, end: 19880808
  4. FLUOROURACIL [Suspect]
     Indication: BREAST CANCER FEMALE
     Dosage: 6 CYCLES
     Route: 042
     Dates: start: 19880128, end: 19880808

REACTIONS (1)
  - CARDIOMYOPATHY [None]
